FAERS Safety Report 6962994-X (Version None)
Quarter: 2010Q3

REPORT INFORMATION
  Report Type: 
  Country: None (occurrence: None)
  Receive Date: 20100902
  Receipt Date: 20100823
  Transmission Date: 20110219
  Serious: Yes (Other)
  Sender: FDA-Public Use
  Company Number: US-ROCHE-722799

PATIENT

DRUGS (4)
  1. CAPECITABINE [Suspect]
     Dosage: ON DAY 1 AND DAY 15.  TOTAL 6 DOSES.  CYCLE DURATION 28 DAYS.
     Route: 048
  2. OXALIPLATIN [Suspect]
     Dosage: OVER 2 HOURS, ON DAY 1 AND DAY 15.  CYCLE DURATION 28 DAYS.
     Route: 042
  3. LEUCOVORIN CALCIUM [Suspect]
     Dosage: ON DAY 1 AND DAY 15.  CYCLE DURATION 28 DAYS.
     Route: 040
  4. FLUOROURACIL [Suspect]
     Dosage: ON DAY 1 AND DAY 15.  CYCLE DURATION 28 DAYS.
     Route: 040

REACTIONS (20)
  - ASPARTATE AMINOTRANSFERASE [None]
  - COAGULOPATHY [None]
  - DECREASED APPETITE [None]
  - DEHYDRATION [None]
  - DIARRHOEA [None]
  - DYSPNOEA [None]
  - FATIGUE [None]
  - GRANULOCYTOPENIA [None]
  - HYPERGLYCAEMIA [None]
  - INFECTION [None]
  - LEUKOPENIA [None]
  - NAUSEA [None]
  - PAIN [None]
  - PALMAR-PLANTAR ERYTHRODYSAESTHESIA SYNDROME [None]
  - PERIPHERAL MOTOR NEUROPATHY [None]
  - PERIPHERAL SENSORY NEUROPATHY [None]
  - PYREXIA [None]
  - THROMBOCYTOPENIA [None]
  - UROGENITAL FISTULA [None]
  - VOMITING [None]
